FAERS Safety Report 7478359-0 (Version None)
Quarter: 2011Q2

REPORT INFORMATION
  Report Type: 
  Country: None (occurrence: None)
  Receive Date: 20110513
  Receipt Date: 20090819
  Transmission Date: 20111010
  Serious: No
  Sender: FDA-Public Use
  Company Number: US-PFIZER INC-2009258062

PATIENT
  Sex: Female

DRUGS (1)
  1. AZULFIDINE [Suspect]

REACTIONS (3)
  - PAIN [None]
  - EPISTAXIS [None]
  - SPEECH DISORDER [None]
